FAERS Safety Report 4475616-7 (Version None)
Quarter: 2004Q3

REPORT INFORMATION
  Report Type: 
  Country: None (occurrence: None)
  Receive Date: 20040923
  Receipt Date: 20040713
  Transmission Date: 20050211
  Serious: No
  Sender: FDA-Public Use
  Company Number: USA040772526

PATIENT
  Age: 80 Year
  Sex: Female

DRUGS (4)
  1. FORTEO [Suspect]
     Indication: OSTEOPOROSIS
     Dates: start: 20040301, end: 20040702
  2. AMIODARONE [Concomitant]
  3. TIMOPTIC [Concomitant]
  4. PRILOSEC [Concomitant]

REACTIONS (1)
  - BALANCE DISORDER [None]
